FAERS Safety Report 5879413-7 (Version None)
Quarter: 2008Q3

REPORT INFORMATION
  Report Type: 
  Country: None (occurrence: None)
  Receive Date: 20080912
  Receipt Date: 20080904
  Transmission Date: 20090109
  Serious: Yes (Other)
  Sender: FDA-Public Use
  Company Number: B0535555A

PATIENT
  Age: 73 Year
  Sex: Female

DRUGS (5)
  1. AMOXICILLIN [Suspect]
     Route: 042
     Dates: start: 20080818
  2. GLICLAZIDE [Concomitant]
     Route: 048
  3. SIMVASTATIN [Concomitant]
     Route: 048
  4. METFORMIN [Concomitant]
     Route: 048
  5. PREDNISOLONE [Concomitant]
     Dosage: 10MG PER DAY
     Route: 048

REACTIONS (3)
  - FLUSHING [None]
  - HYPOTENSION [None]
  - SINUS TACHYCARDIA [None]
